FAERS Safety Report 5122615-8 (Version None)
Quarter: 2006Q4

REPORT INFORMATION
  Report Type: 
  Country: None (occurrence: None)
  Receive Date: 20061009
  Receipt Date: 20060928
  Transmission Date: 20070319
  Serious: Yes (Hospitalization)
  Sender: FDA-Public Use
  Company Number: GR-JNJFOC-20061000085

PATIENT
  Sex: Male

DRUGS (3)
  1. RISPERIDONE [Suspect]
     Indication: PSYCHOTIC DISORDER
     Route: 048
  2. TAVOR [Concomitant]
     Route: 065
  3. REMERON [Concomitant]
     Route: 065

REACTIONS (1)
  - RHABDOMYOLYSIS [None]
